FAERS Safety Report 6284121-7 (Version None)
Quarter: 2009Q3

REPORT INFORMATION
  Report Type: 
  Country: None (occurrence: None)
  Receive Date: 20090722
  Receipt Date: 20090709
  Transmission Date: 20100115
  Serious: Yes (Hospitalization)
  Sender: FDA-Public Use
  Company Number: TRP_06199_2009

PATIENT
  Sex: Male
  Weight: 71.6683 kg

DRUGS (8)
  1. INFERGEN [Suspect]
     Indication: HEPATITIS C
     Dosage: (15 UG QD, [MISSED INJECTIONS FOR APPROXIMATELY 7 DAYS] SUBCUTANEOUS
     Route: 058
     Dates: start: 20090419
  2. RIBAVIRIN [Suspect]
     Indication: HEPATITIS C
     Dosage: (800 MG BID ORAL)
     Route: 048
     Dates: start: 20090419
  3. DIGOXIN [Concomitant]
  4. TOPROL-XL [Concomitant]
  5. CENTRUM SILVER /01292501/ [Concomitant]
  6. CHOLINE [Concomitant]
  7. SEROQUEL [Concomitant]
  8. VITAMIN B12 /00056201/ [Concomitant]

REACTIONS (11)
  - ANAEMIA [None]
  - DECREASED APPETITE [None]
  - FATIGUE [None]
  - IMPAIRED WORK ABILITY [None]
  - INAPPROPRIATE SCHEDULE OF DRUG ADMINISTRATION [None]
  - NAUSEA [None]
  - SOMNOLENCE [None]
  - TREATMENT NONCOMPLIANCE [None]
  - VOMITING [None]
  - WEIGHT DECREASED [None]
  - WHITE BLOOD CELL COUNT DECREASED [None]
